FAERS Safety Report 20491826 (Version 1)
Quarter: 2022Q1

REPORT INFORMATION
  Report Type: Spontaneous
  Country: US (occurrence: US)
  Receive Date: 20220218
  Receipt Date: 20220218
  Transmission Date: 20220423
  Serious: Yes (Death, Hospitalization)
  Sender: FDA-Public Use
  Company Number: US-PFIZER INC-202200266580

PATIENT
  Age: 54 Year
  Sex: Male
  Weight: 78 kg

DRUGS (2)
  1. ZIRABEV [Suspect]
     Active Substance: BEVACIZUMAB-BVZR
     Indication: Colon cancer
     Dosage: 436.5MG EVERY 14 DAYS BY INFUSION
     Dates: start: 20220112, end: 20220126
  2. CAMPTOSAR [Suspect]
     Active Substance: IRINOTECAN HYDROCHLORIDE
     Indication: Colon cancer
     Dosage: 344.8MG EVERY 14 DAYS BY INFUSION
     Dates: start: 20220112, end: 20220126

REACTIONS (5)
  - Death [Fatal]
  - Dyspnoea [Unknown]
  - Sepsis [Unknown]
  - Oedema [Unknown]
  - Weight fluctuation [Unknown]

NARRATIVE: CASE EVENT DATE: 20220214
